FAERS Safety Report 9338950 (Version 1)
Quarter: 2013Q2

REPORT INFORMATION
  Report Type: Spontaneous
  Country: US (occurrence: US)
  Receive Date: 20130610
  Receipt Date: 20130610
  Transmission Date: 20140414
  Serious: Yes (Death)
  Sender: FDA-Public Use
  Company Number: US-ROCHE-1231956

PATIENT
  Age: 53 Year
  Sex: Male
  Weight: 100.79 kg

DRUGS (13)
  1. VEMURAFENIB [Suspect]
     Indication: METASTATIC MALIGNANT MELANOMA
     Route: 048
     Dates: start: 20110531
  2. LOVENOX [Concomitant]
     Route: 065
  3. NEXIUM [Concomitant]
     Route: 065
  4. OXYCODONE [Concomitant]
     Dosage: 5-10MG
     Route: 065
  5. NEURONTIN (UNITED STATES) [Concomitant]
     Route: 065
  6. DEXAMETHASONE [Concomitant]
     Route: 065
  7. KEPPRA [Concomitant]
     Dosage: 500MG IN MORNING, 750MG IN EVENING
     Route: 065
  8. ATIVAN [Concomitant]
     Dosage: 1MG IN MORNING AND THRICE A DAY AS REQUIRED
     Route: 065
  9. MIRALAX [Concomitant]
     Route: 065
  10. SENOKOT-S [Concomitant]
     Dosage: 1-2 TWICE A DAY
     Route: 065
  11. FUROSEMIDE [Concomitant]
     Route: 065
  12. ALLOPURINOL [Concomitant]
     Route: 065
  13. ASPIRIN [Concomitant]
     Route: 065

REACTIONS (1)
  - Disease progression [Fatal]
